FAERS Safety Report 9639837 (Version 1)
Quarter: 2013Q4

REPORT INFORMATION
  Report Type: Spontaneous
  Country: US (occurrence: None)
  Receive Date: 20131021
  Receipt Date: 20131021
  Transmission Date: 20140711
  Serious: Yes (Disabling, Other)
  Sender: FDA-Public Use
  Company Number: None

PATIENT
  Age: 44 Year
  Sex: Female
  Weight: 105.24 kg

DRUGS (1)
  1. LYRICA [Suspect]
     Indication: NEURALGIA
     Dosage: 100MG TWICE A DAY TAKEN BY MOUTH
     Dates: start: 20131014, end: 20131017

REACTIONS (8)
  - Mania [None]
  - Confusional state [None]
  - Dry mouth [None]
  - Delusion [None]
  - Tachyphrenia [None]
  - Restlessness [None]
  - Homicidal ideation [None]
  - Anger [None]
